FAERS Safety Report 23500761 (Version 1)
Quarter: 2024Q1

REPORT INFORMATION
  Report Type: Spontaneous
  Country: GR (occurrence: GR)
  Receive Date: 20240208
  Receipt Date: 20240208
  Transmission Date: 20240410
  Serious: Yes (Life-Threatening, Hospitalization, Other)
  Sender: FDA-Public Use
  Company Number: GR-BAXTER-2023BAX039137

PATIENT
  Age: 68 Year
  Sex: Female
  Weight: 46 kg

DRUGS (18)
  1. DOXORUBICIN HYDROCHLORIDE [Suspect]
     Active Substance: DOXORUBICIN HYDROCHLORIDE
     Indication: Diffuse large B-cell lymphoma
     Dosage: 79.5 MG, EVERY 3 WEEKS
     Route: 042
     Dates: start: 20231002
  2. RITUXIMAB [Suspect]
     Active Substance: RITUXIMAB
     Indication: Diffuse large B-cell lymphoma
     Dosage: 596.25 MG, EVERY 3 WEEKS, ONGOING
     Route: 042
     Dates: start: 20231002
  3. VINCRISTINE [Suspect]
     Active Substance: VINCRISTINE
     Indication: Diffuse large B-cell lymphoma
     Dosage: 2 MG, EVERY 3 WEEKS
     Route: 042
     Dates: start: 20231002
  4. PREDNISONE [Suspect]
     Active Substance: PREDNISONE
     Indication: Diffuse large B-cell lymphoma
     Dosage: C1-6, D1-5, EVERY 1 DAYS
     Route: 048
     Dates: start: 20231002
  5. EPCORITAMAB [Suspect]
     Active Substance: EPCORITAMAB
     Indication: Diffuse large B-cell lymphoma
     Dosage: 48 MG, CYCLIC
     Route: 058
     Dates: start: 20231003, end: 20231205
  6. EPCORITAMAB [Suspect]
     Active Substance: EPCORITAMAB
     Dosage: 48 MG, CYCLIC
     Route: 058
     Dates: start: 20231219
  7. CYCLOPHOSPHAMIDE [Suspect]
     Active Substance: CYCLOPHOSPHAMIDE
     Indication: Diffuse large B-cell lymphoma
     Dosage: 1192.5 MG, EVERY 3 WEEKS
     Route: 042
     Dates: start: 20231002
  8. NOXAFIL [Concomitant]
     Active Substance: POSACONAZOLE
     Indication: Antifungal prophylaxis
     Dosage: 7.5 ML, EVERY 1 DAYS
     Dates: start: 20231005
  9. DEXAMETHASONE [Concomitant]
     Active Substance: DEXAMETHASONE
     Indication: Prophylaxis
     Dosage: INTRAVENOUS BOLUS/ ORAL, EVERY 1 DAYS
     Route: 040
     Dates: start: 20231018
  10. DEXAMETHASONE [Concomitant]
     Active Substance: DEXAMETHASONE
     Dosage: 15 MG INTRAVENOUS BOLUS/ ORAL, EVERY 1 DAYS
     Route: 048
     Dates: start: 20231018
  11. SULFAMETHOXAZOLE\TRIMETHOPRIM [Concomitant]
     Active Substance: SULFAMETHOXAZOLE\TRIMETHOPRIM
     Indication: Antifungal prophylaxis
     Dosage: 960 MG, EVERY 3 WEEKS
     Dates: start: 20231005
  12. ONDANSETRON [Concomitant]
     Active Substance: ONDANSETRON
     Indication: Prophylaxis of nausea and vomiting
     Dosage: 8 MG, AS NECESSARY
     Dates: start: 20231002
  13. ALLOPURINOL [Concomitant]
     Active Substance: ALLOPURINOL
     Indication: Prophylaxis
     Dosage: 300 MG, EVERY 1 DAYS
     Dates: start: 20231002
  14. LEUCOVORIN CALCIUM [Concomitant]
     Active Substance: LEUCOVORIN CALCIUM
     Indication: Drug toxicity prophylaxis
     Dosage: 15 MG, 2/WEEKS
     Dates: start: 20231005
  15. VALACYCLOVIR [Concomitant]
     Active Substance: VALACYCLOVIR HYDROCHLORIDE
     Indication: Antiviral prophylaxis
     Dosage: 500 MG, EVERY 1 DAYS
     Dates: start: 20231005
  16. LACTULOSE [Concomitant]
     Active Substance: LACTULOSE
     Indication: Constipation prophylaxis
     Dosage: 10 ML, AS NECESSARY
     Dates: start: 20231002
  17. OMEPRAZOLE [Concomitant]
     Active Substance: OMEPRAZOLE
     Indication: Gastrointestinal disorder prophylaxis
     Dosage: 20 MG, EVERY 1 DAYS
     Dates: start: 20231002
  18. FILGRASTIM [Concomitant]
     Active Substance: FILGRASTIM
     Indication: Prophylaxis
     Dosage: 30 IU, AS NECESSARY
     Dates: start: 20231010

REACTIONS (9)
  - Klebsiella infection [Recovered/Resolved]
  - Pyrexia [Recovered/Resolved]
  - Fatigue [Unknown]
  - Neutrophil count decreased [Recovered/Resolved]
  - Leukopenia [Recovered/Resolved]
  - Pyrexia [Recovered/Resolved]
  - Weight decreased [Unknown]
  - Asthenia [Unknown]
  - Decreased appetite [Unknown]

NARRATIVE: CASE EVENT DATE: 20231212
